FAERS Safety Report 11661375 (Version 2)
Quarter: 2015Q4

REPORT INFORMATION
  Report Type: Spontaneous
  Country: CN (occurrence: CN)
  Receive Date: 20151026
  Receipt Date: 20151029
  Transmission Date: 20160304
  Serious: Yes (Congenital Anomaly, Other)
  Sender: FDA-Public Use
  Company Number: CN-ELI_LILLY_AND_COMPANY-CN201510005957

PATIENT
  Age: 0 Year

DRUGS (7)
  1. HUMULIN R [Suspect]
     Active Substance: INSULIN HUMAN
     Indication: GESTATIONAL DIABETES
     Dosage: 8 U, EACH MORNING
     Route: 064
     Dates: start: 20150507
  2. HUMULIN R [Suspect]
     Active Substance: INSULIN HUMAN
     Dosage: 11 U, EACH EVENING
     Route: 064
     Dates: start: 20150507
  3. NOVOLIN N [Concomitant]
     Active Substance: INSULIN HUMAN
     Indication: GESTATIONAL DIABETES
     Dosage: 8 U, QD
     Route: 064
     Dates: start: 20150507
  4. HUMULIN R [Suspect]
     Active Substance: INSULIN HUMAN
     Dosage: 8 U, QD
     Route: 064
     Dates: start: 20150507
  5. CALCIUM [Concomitant]
     Active Substance: CALCIUM
     Route: 064
  6. HUMULIN R [Suspect]
     Active Substance: INSULIN HUMAN
     Dosage: 31 U, QD
     Route: 063
     Dates: start: 20150911
  7. ELEVIT                             /01730301/ [Concomitant]
     Route: 064

REACTIONS (3)
  - Atrial septal defect [Unknown]
  - Foetal exposure during pregnancy [Recovered/Resolved]
  - Exposure during breast feeding [Not Recovered/Not Resolved]

NARRATIVE: CASE EVENT DATE: 20150507
